FAERS Safety Report 17975197 (Version 1)
Quarter: 2020Q3

REPORT INFORMATION
  Report Type: Spontaneous
  Country: CN (occurrence: CN)
  Receive Date: 20200702
  Receipt Date: 20200702
  Transmission Date: 20201103
  Serious: Yes (Hospitalization, Other)
  Sender: FDA-Public Use
  Company Number: CN-ENDO PHARMACEUTICALS INC-2020-004556

PATIENT
  Age: 18 Year
  Sex: Male

DRUGS (1)
  1. KETALAR [Suspect]
     Active Substance: KETAMINE HYDROCHLORIDE
     Indication: PRODUCT USED FOR UNKNOWN INDICATION
     Dosage: UNK UNKNOWN, UNKNOWN
     Route: 065

REACTIONS (11)
  - Drug abuse [Unknown]
  - Hydronephrosis [Unknown]
  - Pyonephrosis [Unknown]
  - Chronic kidney disease [Unknown]
  - Contracted bladder [Unknown]
  - Urinary bladder polyp [Unknown]
  - Urogenital fistula [Unknown]
  - Urethral stenosis [Unknown]
  - Spermatocele [Recovered/Resolved]
  - Cystitis [Unknown]
  - Reduced bladder capacity [Unknown]
